FAERS Safety Report 6654070-0 (Version None)
Quarter: 2010Q1

REPORT INFORMATION
  Report Type: 
  Country: None (occurrence: None)
  Receive Date: 20100324
  Receipt Date: 20100316
  Transmission Date: 20100710
  Serious: Yes (Life-Threatening)
  Sender: FDA-Public Use
  Company Number: 007175

PATIENT
  Sex: Male
  Weight: 84 kg

DRUGS (1)
  1. CERTOLIZUMAB PEGOL (CERTOLIZUMAB PEGOL) [Suspect]
     Indication: CROHN'S DISEASE
     Dosage: (200 MG, DAILY SUBCUTANEOUS)
     Route: 058
     Dates: start: 20070619, end: 20070619

REACTIONS (7)
  - DYSPNOEA [None]
  - HYPOTENSION [None]
  - LARYNGEAL OEDEMA [None]
  - NO THERAPEUTIC RESPONSE [None]
  - ORTHOSTATIC INTOLERANCE [None]
  - RASH [None]
  - STRIDOR [None]
